FAERS Safety Report 16407135 (Version 5)
Quarter: 2019Q4

REPORT INFORMATION
  Report Type: Spontaneous
  Country: BR (occurrence: BR)
  Receive Date: 20190608
  Receipt Date: 20191004
  Transmission Date: 20200122
  Serious: Yes (Hospitalization)
  Sender: FDA-Public Use
  Company Number: BR-ROCHE-2331943

PATIENT
  Age: 79 Year
  Sex: Female
  Weight: 31.7 kg

DRUGS (11)
  1. VITAMIN D3 [Concomitant]
     Active Substance: CHOLECALCIFEROL
  2. TRASTUZUMAB. [Concomitant]
     Active Substance: TRASTUZUMAB
     Indication: BREAST NEOPLASM
     Route: 041
     Dates: start: 20190226
  3. DOCETAXEL. [Suspect]
     Active Substance: DOCETAXEL
     Indication: BREAST NEOPLASM
     Dosage: DILLUTED IN 250 ML IN SALINE SOLUTION 0,9% IN 1 HOUR?DATE OF LAST INFUSION DATE: 9/MAY/2019
     Route: 042
     Dates: start: 20190226
  4. RANITIDINE. [Concomitant]
     Active Substance: RANITIDINE
     Indication: PREMEDICATION
     Route: 065
  5. LEVOFLOXACIN. [Concomitant]
     Active Substance: LEVOFLOXACIN
     Route: 065
     Dates: start: 20190306, end: 20190316
  6. ONTAX [Suspect]
     Active Substance: PACLITAXEL
     Indication: BREAST CANCER
     Dosage: DILUTED IN 500 ML OF SALINE SOLUTION 0,9 %?NEXT DOSES: 12/MAR/2019 AND 19/MAR/2019
     Route: 042
     Dates: start: 20190226
  7. DEXAMETHASONE. [Concomitant]
     Active Substance: DEXAMETHASONE
     Indication: PREMEDICATION
     Route: 065
  8. ATORVASTATIN [Concomitant]
     Active Substance: ATORVASTATIN
     Route: 065
  9. PREDNISONE. [Concomitant]
     Active Substance: PREDNISONE
     Dosage: 09-APR-2019 - IT WAS NOT SPECIFIED IF IT WAS THE START OR END?DATE) AFTER WORSENING OF THE CONDITION
     Route: 065
  10. PERTUZUMAB. [Suspect]
     Active Substance: PERTUZUMAB
     Indication: BREAST CANCER
     Dosage: DILUTED IN 250 ML OF SALINE SOLUTION 0,9 %?NEXT DOSE: 27/MAR/2019.?DATE OF LAST INFUSION DATE: 9/MAY
     Route: 042
     Dates: start: 20190226
  11. DIPHENHYDRAMINE. [Concomitant]
     Active Substance: DIPHENHYDRAMINE
     Indication: PREMEDICATION
     Route: 065

REACTIONS (3)
  - Pneumonitis [Recovered/Resolved]
  - Mucosal inflammation [Recovered/Resolved]
  - Diarrhoea [Recovered/Resolved]

NARRATIVE: CASE EVENT DATE: 20190325
